FAERS Safety Report 19659570 (Version 2)
Quarter: 2021Q3

REPORT INFORMATION
  Report Type: Report from Study
  Country: None (occurrence: FR)
  Receive Date: 20210804
  Receipt Date: 20210914
  Transmission Date: 20211014
  Serious: Yes (Hospitalization)
  Sender: FDA-Public Use
  Company Number: FR-ABBVIE-21K-056-3999720-00

PATIENT
  Age: 84 Year
  Sex: Male

DRUGS (4)
  1. DUODOPA [Suspect]
     Active Substance: CARBIDOPA\LEVODOPA
     Dosage: MD 7 ML, CFR 5.8 ML/H 6.30 AM ? 8 PM, EXTRA DOSE 4 ML?IF NEEDED MAX 3 TIMES PER DAY
     Route: 050
     Dates: start: 202107
  2. DUODOPA [Suspect]
     Active Substance: CARBIDOPA\LEVODOPA
     Indication: PARKINSON^S DISEASE
     Route: 050
     Dates: start: 202008, end: 20210716
  3. DUODOPA [Suspect]
     Active Substance: CARBIDOPA\LEVODOPA
     Dosage: MORNING DOSE 5.5ML, CONTINUOUS FLOW RATE 6 ML/H FROM 6:30 AM TO 08:00 PM
     Route: 050
     Dates: start: 20210716, end: 202107
  4. GUTRON [Concomitant]
     Active Substance: MIDODRINE HYDROCHLORIDE
     Indication: PRODUCT USED FOR UNKNOWN INDICATION
     Dosage: 2 IN THE MORNING AROUND 10 AM AND AT NOON
     Route: 048

REACTIONS (11)
  - Balance disorder [Unknown]
  - Hypotension [Unknown]
  - Unevaluable event [Not Recovered/Not Resolved]
  - Hypophagia [Not Recovered/Not Resolved]
  - Fall [Unknown]
  - Dyskinesia [Unknown]
  - Decreased appetite [Not Recovered/Not Resolved]
  - Dizziness [Not Recovered/Not Resolved]
  - Freezing phenomenon [Unknown]
  - Weight decreased [Not Recovered/Not Resolved]
  - Gait disturbance [Unknown]

NARRATIVE: CASE EVENT DATE: 2021
